FAERS Safety Report 21424571 (Version 6)
Quarter: 2023Q1

REPORT INFORMATION
  Report Type: Report from Study
  Country: US (occurrence: US)
  Receive Date: 20221007
  Receipt Date: 20230122
  Transmission Date: 20230418
  Serious: Yes (Other)
  Sender: FDA-Public Use
  Company Number: US-BRISTOL-MYERS SQUIBB COMPANY-2022-082218

PATIENT
  Age: 77 Year
  Sex: Female
  Weight: 81.65 kg

DRUGS (2)
  1. ZEPOSIA [Suspect]
     Active Substance: OZANIMOD HYDROCHLORIDE
     Indication: Multiple sclerosis
     Route: 048
     Dates: start: 20220709
  2. LORATADINE [Concomitant]
     Active Substance: LORATADINE
     Indication: Product used for unknown indication

REACTIONS (18)
  - Multiple sclerosis [Unknown]
  - Gastrooesophageal reflux disease [Unknown]
  - Ear pain [Recovering/Resolving]
  - Pain in jaw [Unknown]
  - Hypersensitivity [Unknown]
  - Oropharyngeal discomfort [Unknown]
  - Fatigue [Unknown]
  - Dyspepsia [Unknown]
  - Contusion [Unknown]
  - Fall [Unknown]
  - Visual impairment [Unknown]
  - Cataract [Unknown]
  - Hypoaesthesia oral [Unknown]
  - Headache [Recovering/Resolving]
  - Neck pain [Recovering/Resolving]
  - Cough [Unknown]
  - Head injury [Unknown]
  - Asthenia [Unknown]

NARRATIVE: CASE EVENT DATE: 20220709
